FAERS Safety Report 21191888 (Version 1)
Quarter: 2022Q3

REPORT INFORMATION
  Report Type: Report from Study
  Country: DE (occurrence: DE)
  Receive Date: 20220809
  Receipt Date: 20220809
  Transmission Date: 20221027
  Serious: Yes (Hospitalization)
  Sender: FDA-Public Use
  Company Number: DE-BAXTER-2022BAX017020

PATIENT
  Age: 59 Year
  Sex: Female
  Weight: 54 kg

DRUGS (4)
  1. AMINO ACIDS\DEXTROSE\ELECTROLYTES NOS\SOYBEAN OIL [Suspect]
     Active Substance: AMINO ACIDS\DEXTROSE\ELECTROLYTES NOS\SOYBEAN OIL
     Indication: Parenteral nutrition
     Dosage: 1085 MILLILITERS (ML) ONCE DAILY AT INFUSION RATE 95 ML/H
     Route: 042
     Dates: start: 20220506
  2. CERNEVIT [Suspect]
     Active Substance: VITAMINS
     Indication: Parenteral nutrition
     Dosage: 750 MILLIGRAMS (MG) ONCE DAILY AT INFUSION RATE 95 ML/H
     Route: 042
     Dates: start: 20220506
  3. ELECTROLYTES NOS\MINERALS [Suspect]
     Active Substance: ELECTROLYTES NOS\MINERALS
     Indication: Parenteral nutrition
     Dosage: 10 MILLILITERS (ML) ONCE DAILY AT INFUSION RATE 95 ML/H
     Route: 033
     Dates: start: 20220506
  4. UNSPECIFIED INGREDIENT [Suspect]
     Active Substance: UNSPECIFIED INGREDIENT
     Route: 065

REACTIONS (1)
  - General physical health deterioration [Unknown]

NARRATIVE: CASE EVENT DATE: 20220807
